FAERS Safety Report 4801204-6 (Version None)
Quarter: 2005Q4

REPORT INFORMATION
  Report Type: 
  Country: None (occurrence: None)
  Receive Date: 20051011
  Receipt Date: 20050930
  Transmission Date: 20060501
  Serious: Yes (Death, Hospitalization)
  Sender: FDA-Public Use
  Company Number: 05H-056-0302795-00

PATIENT
  Age: 80 Year
  Sex: Male

DRUGS (8)
  1. MORPHINE SULFATE [Suspect]
     Dates: start: 20041106, end: 20041107
  2. GENTAMICIN SULFATE [Suspect]
     Dates: start: 20041106, end: 20041107
  3. KETOPROFEN [Suspect]
     Indication: BACK PAIN
     Dosage: ORAL
     Route: 048
     Dates: start: 20041023, end: 20041023
  4. KETOPROFEN [Suspect]
     Indication: BACK PAIN
     Dates: start: 20041103, end: 20041106
  5. SPASFON (SPASFON) [Suspect]
     Indication: ABDOMINAL PAIN
     Dates: start: 20041106, end: 20041107
  6. CELECOXIB (CELECOXIB) [Suspect]
     Indication: BACK PAIN
     Dosage: ORAL
     Route: 048
     Dates: start: 20041106, end: 20041107
  7. OMEPRAZOLE [Suspect]
     Dates: start: 20041106, end: 20041107
  8. CEFTRIAXONE [Suspect]
     Dates: start: 20041106, end: 20041107

REACTIONS (14)
  - ABDOMINAL PAIN [None]
  - EMBOLISM [None]
  - ENCEPHALITIS [None]
  - ENDOCARDITIS [None]
  - ENDOCARDITIS STAPHYLOCOCCAL [None]
  - HYPEROSMOLAR STATE [None]
  - INTERVERTEBRAL DISCITIS [None]
  - MULTI-ORGAN FAILURE [None]
  - PERICARDIAL EFFUSION [None]
  - PERIPHERAL EMBOLISM [None]
  - PLEURAL EFFUSION [None]
  - RESPIRATORY DEPRESSION [None]
  - SEPTIC SHOCK [None]
  - STAPHYLOCOCCAL BACTERAEMIA [None]
